FAERS Safety Report 7628266-5 (Version None)
Quarter: 2011Q3

REPORT INFORMATION
  Report Type: 
  Country: None (occurrence: None)
  Receive Date: 20110722
  Receipt Date: 20110701
  Transmission Date: 20111222
  Serious: Yes (Other)
  Sender: FDA-Public Use
  Company Number: US-JNJCP-30000061234

PATIENT
  Age: 21 Year
  Sex: Female
  Weight: 52 kg

DRUGS (2)
  1. NTG ULTRA SHEER SUNBLOCK LOTION SPF85 USA NTULL8US [Suspect]
     Dosage: ONCE,PEA SIZE
     Route: 061
     Dates: start: 20110630, end: 20110701
  2. NONE [Concomitant]

REACTIONS (4)
  - APPLICATION SITE URTICARIA [None]
  - APPLICATION SITE SWELLING [None]
  - THROAT TIGHTNESS [None]
  - APPLICATION SITE ERYTHEMA [None]
